FAERS Safety Report 9198444 (Version 1)
Quarter: 2013Q1

REPORT INFORMATION
  Report Type: Spontaneous
  Country: US (occurrence: None)
  Receive Date: 20120709
  Receipt Date: 20120709
  Transmission Date: 20140127
  Serious: Yes (Other)
  Sender: FDA-Public Use
  Company Number: PHHY2011US54842

PATIENT
  Age: 57 Year
  Sex: Male

DRUGS (3)
  1. GLEEVEC (IMATINIB) [Suspect]
     Indication: SOFT TISSUE CANCER
     Route: 048
     Dates: start: 20110103
  2. MULTIVITAMINS (ASCORBIC ACID, ERGOCALCIFEROL, FOLIC ACID, NICOTINAMIDE, PANTHENOL, RETINOL, RIBOFLAVIN, THIAMINE HYDROCHLORIDE) [Concomitant]
  3. IRON (IRON) [Concomitant]

REACTIONS (1)
  - Anaemia [None]
